FAERS Safety Report 15425436 (Version 1)
Quarter: 2018Q3

REPORT INFORMATION
  Report Type: Spontaneous
  Country: IT (occurrence: IT)
  Receive Date: 20180925
  Receipt Date: 20180925
  Transmission Date: 20181010
  Serious: Yes (Hospitalization)
  Sender: FDA-Public Use
  Company Number: IT-SA-2018SA264755

PATIENT
  Age: 88 Year
  Sex: Female

DRUGS (8)
  1. ALIFLUS [Concomitant]
     Active Substance: FLUTICASONE PROPIONATE\SALMETEROL XINAFOATE
     Dosage: UNK
  2. XALATAN [Concomitant]
     Active Substance: LATANOPROST
  3. GABAPENTIN. [Concomitant]
     Active Substance: GABAPENTIN
     Dosage: UNK
  4. TRIATEC [RAMIPRIL] [Concomitant]
     Dosage: UNK
  5. TOPIRAMATE. [Concomitant]
     Active Substance: TOPIRAMATE
     Dosage: UNK
  6. CLEXANE T [Suspect]
     Active Substance: ENOXAPARIN SODIUM
     Indication: FOOT FRACTURE
     Dosage: 1 DF, QD
  7. TORVAST [Concomitant]
     Active Substance: ATORVASTATIN
     Dosage: UNK
  8. PANTORC [Concomitant]
     Active Substance: PANTOPRAZOLE SODIUM
     Dosage: UNK

REACTIONS (1)
  - Anaemia [Recovering/Resolving]

NARRATIVE: CASE EVENT DATE: 20180727
